FAERS Safety Report 14790050 (Version 5)
Quarter: 2018Q3

REPORT INFORMATION
  Report Type: Report from Study
  Country: GB (occurrence: GB)
  Receive Date: 20180423
  Receipt Date: 20180805
  Transmission Date: 20181010
  Serious: Yes (Other)
  Sender: FDA-Public Use
  Company Number: PHHY2018GB066906

PATIENT
  Age: 44 Year
  Sex: Male

DRUGS (2)
  1. ENTRESTO [Suspect]
     Active Substance: SACUBITRIL\VALSARTAN
     Indication: CARDIAC FAILURE CHRONIC
     Dosage: 50 MG, (50 MG (24 MG SACUBITRIL AND 26 MG VALSARTAN), BID)
     Route: 048
     Dates: start: 20160617
  2. ENTRESTO [Suspect]
     Active Substance: SACUBITRIL\VALSARTAN
     Dosage: 50 MG (24 MG SACUBITRIL AND 26 MG VALSARTAN), BID
     Route: 048
     Dates: start: 20160725

REACTIONS (6)
  - Neoplasm malignant [Recovered/Resolved]
  - Eye opacity [Not Recovered/Not Resolved]
  - Hand fracture [Not Recovered/Not Resolved]
  - Vitreous haemorrhage [Recovering/Resolving]
  - Hand fracture [Recovered/Resolved]
  - Fibrosis [Not Recovered/Not Resolved]

NARRATIVE: CASE EVENT DATE: 20170705
